FAERS Safety Report 15686143 (Version 1)
Quarter: 2018Q4

REPORT INFORMATION
  Report Type: Spontaneous
  Country: ES (occurrence: ES)
  Receive Date: 20181204
  Receipt Date: 20181204
  Transmission Date: 20190205
  Serious: Yes (Hospitalization, Other)
  Sender: FDA-Public Use
  Company Number: ES-TEVA-2018-ES-981498

PATIENT
  Age: 53 Year
  Sex: Male

DRUGS (3)
  1. PLAVIX [Interacting]
     Active Substance: CLOPIDOGREL BISULFATE
     Dosage: 75 MILLIGRAM DAILY;
     Route: 048
     Dates: start: 20171114, end: 20180905
  2. IBUPROFENO (1769A) [Suspect]
     Active Substance: IBUPROFEN
     Indication: LIGAMENT SPRAIN
     Dosage: 1 COMPRESSED, SINGLE DOSE
     Route: 048
     Dates: start: 20180904, end: 20180904
  3. HIBOR 2.500 UI ANTI-XA/0,2 ML SOLUCI?N INYECTABLE EN JERINGAS PRECARGA [Interacting]
     Active Substance: BEMIPARIN SODIUM
     Dosage: 2500 MILLIGRAM DAILY;
     Route: 058
     Dates: start: 20171025

REACTIONS (2)
  - Upper gastrointestinal haemorrhage [Recovered/Resolved]
  - Drug interaction [Unknown]

NARRATIVE: CASE EVENT DATE: 20180905
